FAERS Safety Report 7112663-0 (Version None)
Quarter: 2010Q4

REPORT INFORMATION
  Report Type: 
  Country: None (occurrence: None)
  Receive Date: 20101119
  Receipt Date: 20101105
  Transmission Date: 20110411
  Serious: Yes (Hospitalization, Other)
  Sender: FDA-Public Use
  Company Number: PHHY2010BR75692

PATIENT
  Sex: Male

DRUGS (3)
  1. DIOVAN HCT [Suspect]
     Dosage: 320/25MG, UNK
  2. LEXAPRO [Suspect]
     Dosage: 10 MG, UNK
  3. TRILEPTAL [Concomitant]
     Dosage: 600 MG, UNK

REACTIONS (3)
  - CEREBROVASCULAR ACCIDENT [None]
  - DEPRESSION [None]
  - SHOCK [None]
